FAERS Safety Report 19232887 (Version 1)
Quarter: 2021Q2

REPORT INFORMATION
  Report Type: Spontaneous
  Country: US (occurrence: US)
  Receive Date: 20210507
  Receipt Date: 20210507
  Transmission Date: 20210717
  Serious: Yes (Other)
  Sender: FDA-Public Use
  Company Number: US-PFIZER INC-2021486666

PATIENT
  Age: 44 Year
  Sex: Male

DRUGS (3)
  1. ALPRAZOLAM. [Suspect]
     Active Substance: ALPRAZOLAM
     Indication: ANXIETY
     Dosage: 3 MG, 3X/DAY
  2. ALPRAZOLAM. [Suspect]
     Active Substance: ALPRAZOLAM
     Indication: DEPRESSION
     Dosage: QUICKLY TAPERED
  3. ALPRAZOLAM. [Suspect]
     Active Substance: ALPRAZOLAM
     Indication: IRRITABILITY
     Dosage: 0.5 MG, 3X/DAY

REACTIONS (11)
  - Anxiety [Unknown]
  - Fear [Unknown]
  - Irritability [Unknown]
  - Insomnia [Unknown]
  - Hallucination, auditory [Unknown]
  - Homicidal ideation [Unknown]
  - Anger [Unknown]
  - Agitation [Unknown]
  - Prescribed overdose [Unknown]
  - Hypervigilance [Unknown]
  - Withdrawal syndrome [Unknown]
